FAERS Safety Report 4926192-3 (Version None)
Quarter: 2006Q1

REPORT INFORMATION
  Report Type: 
  Country: None (occurrence: None)
  Receive Date: 20060228
  Receipt Date: 20060129
  Transmission Date: 20060701
  Serious: Yes (Disabling)
  Sender: FDA-Public Use
  Company Number: JP-BRISTOL-MYERS SQUIBB COMPANY-13264718

PATIENT
  Age: 68 Year
  Sex: Male

DRUGS (3)
  1. PARAPLATIN [Suspect]
     Indication: NON-SMALL CELL LUNG CANCER STAGE IIIB
     Route: 041
     Dates: start: 20050713
  2. TAXOL [Suspect]
     Indication: NON-SMALL CELL LUNG CANCER STAGE IIIB
     Route: 041
     Dates: start: 20050713
  3. NEUTROGIN [Suspect]
     Route: 051
     Dates: start: 20050727, end: 20050802

REACTIONS (1)
  - INTERSTITIAL LUNG DISEASE [None]
